FAERS Safety Report 19941535 (Version 1)
Quarter: 2021Q4

REPORT INFORMATION
  Report Type: Spontaneous
  Country: US (occurrence: US)
  Receive Date: 20211011
  Receipt Date: 20211011
  Transmission Date: 20220303
  Serious: No
  Sender: FDA-Public Use
  Company Number: US-JAZZ-2021-US-013147

PATIENT
  Sex: Female

DRUGS (3)
  1. SUNOSI [Suspect]
     Active Substance: SOLRIAMFETOL
     Indication: Product used for unknown indication
  2. NUVIGIL [Suspect]
     Active Substance: ARMODAFINIL
     Indication: Product used for unknown indication
  3. RITALIN [Suspect]
     Active Substance: METHYLPHENIDATE HYDROCHLORIDE
     Indication: Product used for unknown indication

REACTIONS (1)
  - Headache [Not Recovered/Not Resolved]
